FAERS Safety Report 26055127 (Version 1)
Quarter: 2025Q4

REPORT INFORMATION
  Report Type: Spontaneous
  Country: JP (occurrence: JP)
  Receive Date: 20251117
  Receipt Date: 20251117
  Transmission Date: 20260117
  Serious: Yes (Hospitalization)
  Sender: MERCK SHARP & DOHME LLC
  Company Number: JP-009507513-2337559

PATIENT
  Age: 79 Year
  Sex: Male

DRUGS (1)
  1. KEYTRUDA [Suspect]
     Active Substance: PEMBROLIZUMAB
     Indication: Renal cell carcinoma
     Route: 041
     Dates: start: 20250116, end: 202509

REACTIONS (2)
  - Blood creatine phosphokinase increased [Recovered/Resolved]
  - Dehydration [Recovering/Resolving]

NARRATIVE: CASE EVENT DATE: 20250101
